FAERS Safety Report 18137725 (Version 1)
Quarter: 2020Q3

REPORT INFORMATION
  Report Type: Spontaneous
  Country: DE (occurrence: DE)
  Receive Date: 20200811
  Receipt Date: 20200811
  Transmission Date: 20201103
  Serious: Yes (Hospitalization, Other)
  Sender: FDA-Public Use
  Company Number: DE-BAXTER-2020BAX015880

PATIENT
  Age: 49 Year
  Sex: Female
  Weight: 74 kg

DRUGS (8)
  1. ENDOXAN 1G [Suspect]
     Active Substance: CYCLOPHOSPHAMIDE
     Indication: BREAST CANCER
     Route: 065
  2. EPIRUBICIN [Suspect]
     Active Substance: EPIRUBICIN
     Indication: BREAST CANCER
     Dosage: 277.50 MILLIGRAM (150 MILLIGRAM/METER SQUARE) D1, D15
     Route: 065
     Dates: start: 20200528, end: 20200528
  3. NEULASTA [Suspect]
     Active Substance: PEGFILGRASTIM
     Indication: NEUTROPENIA
     Dosage: AFTER CHEMO, EXPDT=31?MAY?2022/UNIT=PREFILLED SYRINGE
     Route: 058
  4. NEULASTA [Suspect]
     Active Substance: PEGFILGRASTIM
     Dosage: AFTER CHEMO, EXPDT=31?MAY?2022/UNIT=PREFILLED SYRINGE
     Route: 058
  5. NEULASTA [Suspect]
     Active Substance: PEGFILGRASTIM
     Dosage: AFTER CHEMO, EXPDT=31?MAY?2022/UNIT=PREFILLED SYRINGE
     Route: 058
  6. PACLITAXEL. [Suspect]
     Active Substance: PACLITAXEL
     Indication: BREAST CANCER
     Route: 065
  7. NEULASTA [Suspect]
     Active Substance: PEGFILGRASTIM
     Indication: PROPHYLAXIS
     Dosage: AFTER CHEMO, EXPDT=31?MAY?2022/UNIT=PREFILLED SYRINGE
     Route: 058
  8. NEULASTA [Suspect]
     Active Substance: PEGFILGRASTIM
     Dosage: AFTER CHEMO, EXPDT=31?MAY?2022/UNIT=PREFILLED SYRINGE
     Route: 058
     Dates: start: 20200529, end: 20200529

REACTIONS (3)
  - Leukopenia [Recovered/Resolved]
  - Therapeutic product effect decreased [Unknown]
  - Febrile neutropenia [Recovered/Resolved]

NARRATIVE: CASE EVENT DATE: 20200604
